FAERS Safety Report 13670676 (Version 2)
Quarter: 2017Q3

REPORT INFORMATION
  Report Type: Spontaneous
  Country: IN (occurrence: IN)
  Receive Date: 20170620
  Receipt Date: 20170726
  Transmission Date: 20171127
  Serious: Yes (Hospitalization)
  Sender: FDA-Public Use
  Company Number: IN-GEHC-2017CSU001719

PATIENT

DRUGS (1)
  1. OMNIPAQUE [Suspect]
     Active Substance: IOHEXOL
     Indication: INJURY
     Dosage: 120 ML, SINGLE
     Route: 042
     Dates: start: 20170609, end: 20170609

REACTIONS (2)
  - Back pain [Unknown]
  - Chills [Unknown]

NARRATIVE: CASE EVENT DATE: 20170609
